FAERS Safety Report 5946174-2 (Version None)
Quarter: 2008Q4

REPORT INFORMATION
  Report Type: 
  Country: None (occurrence: None)
  Receive Date: 20081106
  Receipt Date: 20081106
  Transmission Date: 20090506
  Serious: Yes (Other)
  Sender: FDA-Public Use
  Company Number: None

PATIENT
  Sex: Female
  Weight: 47.1741 kg

DRUGS (1)
  1. FLUOXETINE [Suspect]
     Dosage: 20MG Q DAY PO
     Route: 048
     Dates: start: 20081101, end: 20081103

REACTIONS (8)
  - AGITATION [None]
  - ANXIETY [None]
  - DEPRESSION [None]
  - FEELING ABNORMAL [None]
  - INSOMNIA [None]
  - MALAISE [None]
  - PAIN [None]
  - PRODUCT QUALITY ISSUE [None]
